FAERS Safety Report 12504471 (Version 1)
Quarter: 2016Q2

REPORT INFORMATION
  Report Type: Spontaneous
  Country: CA (occurrence: CA)
  Receive Date: 20160628
  Receipt Date: 20160628
  Transmission Date: 20160815
  Serious: Yes (Life-Threatening, Hospitalization)
  Sender: FDA-Public Use
  Company Number: CA-JNJFOC-20160618918

PATIENT
  Age: 79 Year
  Sex: Male

DRUGS (6)
  1. IMBRUVICA [Suspect]
     Active Substance: IBRUTINIB
     Indication: MANTLE CELL LYMPHOMA
     Route: 048
  2. ALLOPURINOL. [Concomitant]
     Active Substance: ALLOPURINOL
     Route: 065
  3. BRIMONIDINE [Concomitant]
     Active Substance: BRIMONIDINE TARTRATE
     Route: 047
  4. DUTASTERIDE. [Concomitant]
     Active Substance: DUTASTERIDE
     Route: 065
  5. LATANOPROST. [Concomitant]
     Active Substance: LATANOPROST
     Route: 047
  6. TIMOLOL. [Concomitant]
     Active Substance: TIMOLOL
     Route: 065

REACTIONS (6)
  - Blood creatinine increased [Unknown]
  - Blood lactate dehydrogenase increased [Unknown]
  - Lymphocyte count increased [Unknown]
  - Blast cells present [Unknown]
  - Tumour lysis syndrome [Unknown]
  - Blood uric acid increased [Unknown]
